FAERS Safety Report 8149241-0 (Version None)
Quarter: 2012Q1

REPORT INFORMATION
  Report Type: 
  Country: None (occurrence: None)
  Receive Date: 20120218
  Receipt Date: 20120103
  Transmission Date: 20120608
  Serious: No
  Sender: FDA-Public Use
  Company Number: US-ALLERGAN-1112410US

PATIENT
  Age: 46 Year
  Sex: Male

DRUGS (1)
  1. BOTOX COSMETIC [Suspect]
     Indication: SKIN WRINKLING
     Dosage: 18 UNITS, SINGLE
     Route: 030
     Dates: start: 20110916, end: 20110916

REACTIONS (5)
  - ANXIETY [None]
  - THROAT IRRITATION [None]
  - NECK PAIN [None]
  - DIARRHOEA [None]
  - NAUSEA [None]
